FAERS Safety Report 4373166-X (Version None)
Quarter: 2004Q2

REPORT INFORMATION
  Report Type: 
  Country: None (occurrence: None)
  Receive Date: 20040603
  Receipt Date: 20040513
  Transmission Date: 20050107
  Serious: Yes (Hospitalization, Disabling, Other)
  Sender: FDA-Public Use
  Company Number: US_0403101733

PATIENT
  Age: 80 Year
  Sex: Male
  Weight: 74 kg

DRUGS (8)
  1. PROZAC [Suspect]
     Indication: DEPRESSION
     Dosage: 20 MG/1 DAY
  2. FORADIL [Concomitant]
  3. NEXIUM [Concomitant]
  4. DETROL [Concomitant]
  5. PREDNISONE [Concomitant]
  6. ALBUTEROL [Concomitant]
  7. ATROVENT [Concomitant]
  8. TEMAZEPAM [Concomitant]

REACTIONS (9)
  - ATELECTASIS [None]
  - ATRIAL TACHYCARDIA [None]
  - CHRONIC OBSTRUCTIVE AIRWAYS DISEASE EXACERBATED [None]
  - DYSPNOEA [None]
  - HEART RATE INCREASED [None]
  - LUNG INFILTRATION [None]
  - MEDICATION ERROR [None]
  - PANIC REACTION [None]
  - RHINORRHOEA [None]
